FAERS Safety Report 5897058-X (Version None)
Quarter: 2008Q3

REPORT INFORMATION
  Report Type: 
  Country: None (occurrence: None)
  Receive Date: 20080924
  Receipt Date: 20080923
  Transmission Date: 20090109
  Serious: Yes (Life-Threatening, Hospitalization)
  Sender: FDA-Public Use
  Company Number: US-MERCK-0809USA02489

PATIENT
  Age: 14 Year
  Sex: Female

DRUGS (3)
  1. SINGULAIR [Suspect]
     Indication: ASTHMA
     Route: 048
     Dates: start: 20070301, end: 20080501
  2. FLOVENT [Concomitant]
     Route: 065
  3. MAXAIR [Concomitant]
     Route: 065

REACTIONS (1)
  - SUICIDE ATTEMPT [None]
